FAERS Safety Report 22119906 (Version 1)
Quarter: 2023Q1

REPORT INFORMATION
  Report Type: Spontaneous
  Country: DE (occurrence: DE)
  Receive Date: 20230321
  Receipt Date: 20230321
  Transmission Date: 20230417
  Serious: Yes (Hospitalization, Other)
  Sender: FDA-Public Use
  Company Number: DE-EMBRYOTOX-202210342

PATIENT
  Age: 1 Day
  Sex: Female
  Weight: 3.07 kg

DRUGS (3)
  1. LAMOTRIGINE [Suspect]
     Active Substance: LAMOTRIGINE
     Indication: Foetal exposure during pregnancy
     Dosage: MATERNAL DOSE: STARTED ON 05 JAN 2022 AT A DOSE OF 440 MG, QD/ ENTIRE PREGNANCY AND LACTATION PERIOD
     Route: 064
  2. VENLAFAXINE [Suspect]
     Active Substance: VENLAFAXINE HYDROCHLORIDE
     Indication: Foetal exposure during pregnancy
     Dosage: MATERNAL DOSE: STARTED ON 05 JAN 2022 AT A DOSE OF 112.5 MG, QD, FOR DEPRESSION, STOPPED ON 01 OCT 2
     Route: 064
  3. AMOXICILLIN [Concomitant]
     Active Substance: AMOXICILLIN
     Indication: Foetal exposure during pregnancy
     Dosage: MATERNAL DOSE: STARTED ON 01 OCT 2022 AT AN UNKNOWN DOSE FOR RESPIRATORY TRACT INFECTION, STOPPED ON
     Route: 064

REACTIONS (4)
  - Selective eating disorder [Recovered/Resolved]
  - Oxygen saturation decreased [Recovered/Resolved]
  - Respiratory disorder neonatal [Recovered/Resolved]
  - Foetal exposure during pregnancy [Unknown]

NARRATIVE: CASE EVENT DATE: 20221001
